FAERS Safety Report 25207988 (Version 1)
Quarter: 2025Q2

REPORT INFORMATION
  Report Type: Other
  Country: US (occurrence: US)
  Receive Date: 20250417
  Receipt Date: 20250417
  Transmission Date: 20250717
  Serious: Yes (Hospitalization, Other)
  Sender: EVEREST LIFE SCIENCES
  Company Number: US-Everest Life Sciences LLC-2175069

PATIENT
  Age: 76 Year
  Sex: Male

DRUGS (1)
  1. DAPSONE [Suspect]
     Active Substance: DAPSONE
     Indication: Pneumocystis jirovecii pneumonia

REACTIONS (3)
  - Cardiogenic shock [Recovering/Resolving]
  - Product use in unapproved indication [Unknown]
  - Methaemoglobinaemia [Recovering/Resolving]
